FAERS Safety Report 25100314 (Version 1)
Quarter: 2025Q1

REPORT INFORMATION
  Report Type: Spontaneous
  Country: JP (occurrence: JP)
  Receive Date: 20250320
  Receipt Date: 20250320
  Transmission Date: 20250408
  Serious: Yes (Other)
  Sender: PHARMACOSMOS A/S
  Company Number: JP-NEBO-672838

PATIENT
  Sex: Female

DRUGS (1)
  1. FERRIC DERISOMALTOSE [Suspect]
     Active Substance: FERRIC DERISOMALTOSE
     Indication: Postpartum haemorrhage

REACTIONS (2)
  - Cardiac failure high output [Recovering/Resolving]
  - Uterine haematoma [Recovering/Resolving]
